FAERS Safety Report 7493364-6 (Version None)
Quarter: 2011Q2

REPORT INFORMATION
  Report Type: 
  Country: None (occurrence: None)
  Receive Date: 20110520
  Receipt Date: 20110516
  Transmission Date: 20111010
  Serious: Yes (Other)
  Sender: FDA-Public Use
  Company Number: US-PFIZER INC-2011060189

PATIENT
  Sex: Male

DRUGS (6)
  1. NORVASC [Concomitant]
     Indication: BLOOD PRESSURE
     Dosage: UNK,
     Dates: start: 19810101, end: 20110101
  2. SYNTHROID [Concomitant]
     Indication: HYPOTHYROIDISM
     Dosage: UNK,
     Dates: start: 20030101
  3. CHANTIX [Suspect]
     Indication: SMOKING CESSATION THERAPY
     Dosage: 1 MG, UNK
     Dates: start: 20090601, end: 20090701
  4. LEXAPRO [Concomitant]
     Indication: DEPRESSION
     Dosage: UNK,
     Dates: start: 20030101, end: 20090101
  5. COUMADIN [Concomitant]
     Indication: THROMBOSIS
     Dosage: UNK,
     Dates: start: 20030101
  6. TESTOSTERONE [Concomitant]
     Indication: HORMONE LEVEL ABNORMAL
     Dosage: UNK,
     Dates: start: 20030101

REACTIONS (10)
  - SUICIDE ATTEMPT [None]
  - ROAD TRAFFIC ACCIDENT [None]
  - MENTAL DISORDER [None]
  - LACERATION [None]
  - INTENTIONAL OVERDOSE [None]
  - DEPRESSION [None]
  - EMOTIONAL DISTRESS [None]
  - AGGRESSION [None]
  - ANXIETY [None]
  - ABNORMAL BEHAVIOUR [None]
